FAERS Safety Report 8418196-3 (Version None)
Quarter: 2012Q2

REPORT INFORMATION
  Report Type: 
  Country: None (occurrence: None)
  Receive Date: 20120607
  Receipt Date: 20120530
  Transmission Date: 20120825
  Serious: Yes (Other)
  Sender: FDA-Public Use
  Company Number: ID-GE HEALTHCARE MEDICAL DIAGNOSTICS-OMPQ-NO-1205S-0547

PATIENT
  Sex: Female
  Weight: 58 kg

DRUGS (4)
  1. MICARDIS [Concomitant]
  2. OMNIPAQUE 140 [Suspect]
     Indication: CHOLELITHIASIS
  3. OMNIPAQUE 140 [Suspect]
     Indication: HEPATIC CIRRHOSIS
     Route: 042
     Dates: start: 20120505, end: 20120505
  4. OMNIPAQUE 140 [Suspect]
     Indication: HEPATIC NEOPLASM MALIGNANT

REACTIONS (2)
  - HYPERTHERMIA [None]
  - HYPERTENSION [None]
